FAERS Safety Report 5899556-1 (Version None)
Quarter: 2008Q3

REPORT INFORMATION
  Report Type: 
  Country: None (occurrence: None)
  Receive Date: 20080926
  Receipt Date: 20080917
  Transmission Date: 20090109
  Serious: Yes (Hospitalization, Other)
  Sender: FDA-Public Use
  Company Number: PHEH2008US08159

PATIENT
  Sex: Female
  Weight: 94.785 kg

DRUGS (15)
  1. RECLAST [Suspect]
     Dosage: 5 MG, UNK
     Dates: start: 20080512, end: 20080512
  2. ZOCOR [Concomitant]
     Indication: HYPERLIPIDAEMIA
     Dosage: 40 MG, QD
  3. LEVOTHROID [Concomitant]
     Dosage: 0.025 MG, QD
  4. NEURONTIN [Concomitant]
     Dosage: 300 MG QAM, 600 MG QPM
  5. METFORMIN HCL [Concomitant]
     Dosage: 500 MG, BID
  6. ASPIRIN [Concomitant]
     Dosage: 325 MG, QD
  7. SENSIPAR [Concomitant]
     Indication: HYPERPARATHYROIDISM PRIMARY
     Dosage: 30 MG, BID
  8. OMEPRAZOLE [Concomitant]
     Dosage: 20 MG, BID
  9. BONIVA [Concomitant]
     Dosage: UNK
     Route: 042
  10. LOTREL [Concomitant]
     Dosage: 10/40, QD
  11. PLAVIX [Concomitant]
     Dosage: 75 MG, QD
  12. LASIX [Concomitant]
     Dosage: 40 MG, QD
  13. POTASSIUM CHLORIDE [Concomitant]
     Dosage: 10 MEQ, QD
  14. COREG [Concomitant]
     Dosage: 80 MG, QD
  15. CATAPRES                                /USA/ [Concomitant]
     Dosage: 0.1 MG, BID

REACTIONS (14)
  - BLOOD GLUCOSE INCREASED [None]
  - BLOOD PRESSURE INCREASED [None]
  - BLOOD TRIGLYCERIDES INCREASED [None]
  - BURNING SENSATION [None]
  - CORONARY ARTERY DISEASE [None]
  - GLOMERULAR FILTRATION RATE DECREASED [None]
  - GLYCOSYLATED HAEMOGLOBIN INCREASED [None]
  - MUSCULAR WEAKNESS [None]
  - PARAESTHESIA [None]
  - RASH [None]
  - SWELLING FACE [None]
  - SYNCOPE [None]
  - VERY LOW DENSITY LIPOPROTEIN INCREASED [None]
  - VITAMIN D DEFICIENCY [None]
